FAERS Safety Report 22074260 (Version 1)
Quarter: 2023Q1

REPORT INFORMATION
  Report Type: Spontaneous
  Country: US (occurrence: US)
  Receive Date: 20230308
  Receipt Date: 20230308
  Transmission Date: 20230418
  Serious: No
  Sender: FDA-Public Use
  Company Number: US-BAYER-2023A023925

PATIENT
  Age: 65 Year
  Sex: Male

DRUGS (7)
  1. MIRALAX [Suspect]
     Active Substance: POLYETHYLENE GLYCOL 3350
     Indication: Constipation
     Dosage: DAILY DOSE 1 CAPFUL
     Route: 048
  2. PURELAX [Concomitant]
     Active Substance: POLYETHYLENE GLYCOL 3350
     Dosage: UNK
  3. DULCOLAX (BISACODYL) [Concomitant]
     Active Substance: BISACODYL
     Indication: Constipation
  4. VITAMINS [Concomitant]
     Active Substance: VITAMINS
     Route: 048
  5. CALCIUM [Concomitant]
     Active Substance: CALCIUM
     Dosage: TWICE A DAY
     Route: 048
  6. FLEET ENEMA [Concomitant]
     Active Substance: SODIUM PHOSPHATE, DIBASIC\SODIUM PHOSPHATE, MONOBASIC
     Indication: Constipation
  7. FLOMAX [Concomitant]
     Active Substance: TAMSULOSIN HYDROCHLORIDE
     Dosage: IN THE MORNING
     Route: 048

REACTIONS (6)
  - Thirst [Unknown]
  - Lip dry [Recovered/Resolved]
  - Pollakiuria [Unknown]
  - Middle insomnia [Unknown]
  - Therapeutic product effect delayed [None]
  - Intentional product misuse [None]

NARRATIVE: CASE EVENT DATE: 20230201
